FAERS Safety Report 13615950 (Version 1)
Quarter: 2017Q2

REPORT INFORMATION
  Report Type: Spontaneous
  Country: US (occurrence: US)
  Receive Date: 20170605
  Receipt Date: 20170605
  Transmission Date: 20170830
  Serious: No
  Sender: FDA-Public Use
  Company Number: None

PATIENT
  Age: 73 Year
  Sex: Male
  Weight: 88.9 kg

DRUGS (2)
  1. LURASIDONE [Suspect]
     Active Substance: LURASIDONE
     Indication: BIPOLAR I DISORDER
     Route: 048
     Dates: start: 20150511, end: 20150608
  2. LURASIDONE [Suspect]
     Active Substance: LURASIDONE
     Indication: ANXIETY
     Route: 048
     Dates: start: 20150511, end: 20150608

REACTIONS (2)
  - Agitation [None]
  - Anxiety [None]

NARRATIVE: CASE EVENT DATE: 20150610
